FAERS Safety Report 6375478-7 (Version None)
Quarter: 2009Q3

REPORT INFORMATION
  Report Type: 
  Country: None (occurrence: None)
  Receive Date: 20090917
  Receipt Date: 20090917
  Transmission Date: 20100115
  Serious: No
  Sender: FDA-Public Use
  Company Number: None

PATIENT
  Sex: Female
  Weight: 99.3377 kg

DRUGS (1)
  1. ALENDRONATE SODIUM [Suspect]
     Indication: RESORPTION BONE INCREASED
     Dosage: 1 TSBLEY WEEKLY PO 5-6 WEEKS
     Route: 048
     Dates: start: 20090715, end: 20090907

REACTIONS (3)
  - ARTHRALGIA [None]
  - BONE PAIN [None]
  - MYALGIA [None]
